FAERS Safety Report 7759314-X (Version None)
Quarter: 2011Q3

REPORT INFORMATION
  Report Type: 
  Country: None (occurrence: None)
  Receive Date: 20110919
  Receipt Date: 20110906
  Transmission Date: 20111222
  Serious: Yes (Other)
  Sender: FDA-Public Use
  Company Number: PL-JNJFOC-20110903972

PATIENT
  Sex: Male

DRUGS (21)
  1. DOXORUBICIN HYDROCHLORIDE [Suspect]
     Route: 042
     Dates: start: 20080101
  2. VINCRISTINE [Suspect]
     Route: 065
  3. DACTINOMYCIN [Suspect]
     Indication: NEPHROBLASTOMA
     Route: 065
  4. DACTINOMYCIN [Suspect]
     Route: 065
     Dates: start: 20080101
  5. ETOPOSIDE [Suspect]
     Indication: NEPHROBLASTOMA
     Route: 065
  6. ETOPOSIDE [Suspect]
     Route: 065
  7. ETOPOSIDE [Suspect]
     Route: 065
  8. VINCRISTINE [Suspect]
     Indication: NEPHROBLASTOMA
     Route: 065
     Dates: start: 20080101
  9. CARBOPLATIN [Suspect]
     Route: 065
  10. ETOPOSIDE [Suspect]
     Route: 065
  11. CARBOPLATIN [Suspect]
     Route: 065
  12. CARBOPLATIN [Suspect]
     Route: 065
  13. IFOSFAMIDE [Suspect]
     Indication: NEPHROBLASTOMA
     Route: 065
  14. ETOPOSIDE [Suspect]
     Route: 065
  15. IFOSFAMIDE [Suspect]
     Route: 065
  16. CYCLOPHOSPHAMIDE [Suspect]
     Route: 065
  17. CARBOPLATIN [Suspect]
     Indication: NEPHROBLASTOMA
     Route: 065
  18. CARBOPLATIN [Suspect]
     Route: 065
  19. IFOSFAMIDE [Suspect]
     Route: 065
  20. DOXORUBICIN HYDROCHLORIDE [Suspect]
     Indication: NEPHROBLASTOMA
     Route: 042
  21. CYCLOPHOSPHAMIDE [Suspect]
     Indication: NEPHROBLASTOMA
     Route: 065

REACTIONS (1)
  - DRUG INEFFECTIVE FOR UNAPPROVED INDICATION [None]
